FAERS Safety Report 10052116 (Version 1)
Quarter: 2014Q2

REPORT INFORMATION
  Report Type: Spontaneous
  Country: US (occurrence: None)
  Receive Date: 20140401
  Receipt Date: 20140401
  Transmission Date: 20141212
  Serious: Yes (Hospitalization)
  Sender: FDA-Public Use
  Company Number: None

PATIENT
  Sex: Male
  Weight: 70.31 kg

DRUGS (1)
  1. SUPER DMZ [Suspect]
     Indication: MUSCLE BUILDING THERAPY
     Route: 048

REACTIONS (1)
  - Jaundice cholestatic [None]
